FAERS Safety Report 5913473-X (Version None)
Quarter: 2008Q4

REPORT INFORMATION
  Report Type: 
  Country: None (occurrence: None)
  Receive Date: 20081008
  Receipt Date: 20081008
  Transmission Date: 20090506
  Serious: Yes (Other)
  Sender: FDA-Public Use
  Company Number: None

PATIENT
  Age: 65 Year
  Sex: Female
  Weight: 109 kg

DRUGS (24)
  1. GABAPENTIN [Suspect]
     Indication: PAIN
     Dosage: 100MG THREE TIMES DAILY PO
     Route: 048
     Dates: start: 20071011, end: 20071018
  2. RISPERDAL [Suspect]
     Indication: DEPRESSION
     Dosage: 0.5MG THREE TIMES DAILY PO
     Route: 048
     Dates: end: 20070924
  3. MONTELUKAST SODIUM [Concomitant]
  4. BOSENTAN [Concomitant]
  5. ATORVASTATIN CALCIUM [Concomitant]
  6. RISPERDAL [Concomitant]
  7. PROMETHAZINE [Concomitant]
  8. ASPIRIN [Concomitant]
  9. SPIRONOLACTONE [Concomitant]
  10. DOXEPIN HCL [Concomitant]
  11. AMLODIPINE [Concomitant]
  12. FENTANYL TRANSDERMAL SYSTEM [Concomitant]
  13. SKELAXIN [Concomitant]
  14. LANSOPRAZOLE [Concomitant]
  15. FERROUS SULFATE [Concomitant]
  16. BUMEX [Concomitant]
  17. PREMARIN [Concomitant]
  18. MISOPROSTOL [Concomitant]
  19. LEVOTHYROXINE SODIUM [Concomitant]
  20. IBUPROFEN TABLETS [Concomitant]
  21. METOLAZONE [Concomitant]
  22. REMODULIN [Concomitant]
  23. WARFARIN SODIUM [Concomitant]
  24. ESCITALOPRAM [Concomitant]

REACTIONS (7)
  - BALANCE DISORDER [None]
  - DYSKINESIA [None]
  - FALL [None]
  - JOINT INJURY [None]
  - MUSCLE TWITCHING [None]
  - TREMOR [None]
  - WITHDRAWAL SYNDROME [None]
